FAERS Safety Report 21299002 (Version 2)
Quarter: 2022Q3

REPORT INFORMATION
  Report Type: Spontaneous
  Country: US (occurrence: US)
  Receive Date: 20220906
  Receipt Date: 20220908
  Transmission Date: 20221027
  Serious: Yes (Other)
  Sender: FDA-Public Use
  Company Number: US-PFIZER INC-202201110425

PATIENT
  Age: 74 Year
  Sex: Female
  Weight: 68.95 kg

DRUGS (11)
  1. BOSULIF [Suspect]
     Active Substance: BOSUTINIB MONOHYDRATE
     Indication: Chronic myeloid leukaemia
     Dosage: 400 MG, 1X/DAY
     Dates: start: 20220115
  2. BOSULIF [Suspect]
     Active Substance: BOSUTINIB MONOHYDRATE
     Dosage: 100 MG, 3X/DAY
     Dates: start: 20220317
  3. PREDNISONE [Concomitant]
     Active Substance: PREDNISONE
     Indication: Renal neoplasm
     Dosage: 30 MG, DAILY (30MG DAILY AND GOING DOWN EVERY 3 WEEKS)
     Dates: start: 202110
  4. ATORVASTATIN [Concomitant]
     Active Substance: ATORVASTATIN
     Indication: Blood cholesterol increased
     Dosage: 10 MG, DAILY
  5. LEVOTHYROXINE [Concomitant]
     Active Substance: LEVOTHYROXINE
     Indication: Hypothyroidism
     Dosage: 25 UG, DAILY
  6. PREMPRO [Concomitant]
     Active Substance: ESTROGENS, CONJUGATED\MEDROXYPROGESTERONE ACETATE
     Indication: Menopause
     Dosage: UNK (0.3MG/1.5MG THREE TIMES A WEEK ORALLY)
     Route: 048
  7. RAMIPRIL [Concomitant]
     Active Substance: RAMIPRIL
     Indication: Hypertension
     Dosage: 10 MG, 1X/DAY
  8. ECOTRIN [Concomitant]
     Active Substance: ASPIRIN
     Indication: Cardiac disorder
     Dosage: 81 MG, 1X/DAY
  9. RESTASIS [Concomitant]
     Active Substance: CYCLOSPORINE
     Indication: Dry eye
     Dosage: 0.05 %, DAILY (0.05% 1 DROP EACH EYE DAILY)
  10. FAMOTIDINE [Concomitant]
     Active Substance: FAMOTIDINE
     Indication: Reflux gastritis
     Dosage: 40 MG, 2X/DAY
  11. LACTASE [Concomitant]
     Active Substance: LACTASE
     Dosage: UNK

REACTIONS (4)
  - Hepatotoxicity [Unknown]
  - Nephropathy toxic [Unknown]
  - Platelet count decreased [Unknown]
  - Neoplasm progression [Unknown]
